FAERS Safety Report 7372888 (Version 10)
Quarter: 2013Q4

REPORT INFORMATION
  Report Type: Report from Study
  Country: PK (occurrence: PK)
  Receive Date: 20100430
  Receipt Date: 20131121
  Transmission Date: 20140711
  Serious: Yes (Hospitalization, Disabling)
  Sender: FDA-Public Use
  Company Number: PK-ROCHE-698983

PATIENT
  Age: 51 Year
  Sex: Female
  Weight: 59 kg

DRUGS (3)
  1. PEG-INTERFERON ALFA 2A [Suspect]
     Indication: HEPATITIS C
     Route: 058
     Dates: start: 20100118, end: 20100422
  2. RIBAZOLE [Suspect]
     Indication: HEPATITIS C
     Dosage: DOSE: 800
     Route: 048
     Dates: start: 20100118, end: 20100422
  3. LEXOTANIL [Concomitant]
     Indication: INSOMNIA
     Dosage: FREQUENCY: SOS
     Route: 048

REACTIONS (7)
  - Dyspnoea [Recovered/Resolved]
  - Hepatic failure [Not Recovered/Not Resolved]
  - Hyponatraemia [Recovered/Resolved]
  - Gingival bleeding [Recovered/Resolved]
  - Asthenia [Not Recovered/Not Resolved]
  - Altered state of consciousness [Recovered/Resolved]
  - Ascites [Recovered/Resolved]
